FAERS Safety Report 18997004 (Version 1)
Quarter: 2021Q1

REPORT INFORMATION
  Report Type: Spontaneous
  Country: US (occurrence: US)
  Receive Date: 20210311
  Receipt Date: 20210311
  Transmission Date: 20210420
  Serious: Yes (Hospitalization)
  Sender: FDA-Public Use
  Company Number: None

PATIENT
  Age: 73 Year
  Sex: Male
  Weight: 91.63 kg

DRUGS (2)
  1. CARBOPLATIN 142MG [Suspect]
     Active Substance: CARBOPLATIN
     Dates: end: 20210217
  2. TAXOL [Suspect]
     Active Substance: PACLITAXEL
     Dates: end: 20210217

REACTIONS (4)
  - Pulmonary mass [None]
  - Dyspnoea [None]
  - Tachycardia [None]
  - Malignant neoplasm progression [None]

NARRATIVE: CASE EVENT DATE: 20210225
